FAERS Safety Report 7055088-9 (Version None)
Quarter: 2010Q4

REPORT INFORMATION
  Report Type: 
  Country: None (occurrence: None)
  Receive Date: 20101021
  Receipt Date: 20101014
  Transmission Date: 20110411
  Serious: Yes (Other)
  Sender: FDA-Public Use
  Company Number: US-RB-013184-10

PATIENT
  Age: 47 Year
  Sex: Male

DRUGS (1)
  1. SUBOXONE TABLET [Suspect]
     Indication: PRODUCT USED FOR UNKNOWN INDICATION
     Dosage: DOSING INFORMATION UNKNOWN
     Route: 065

REACTIONS (11)
  - BACK INJURY [None]
  - CONSTIPATION [None]
  - DRUG DEPENDENCE [None]
  - FATIGUE [None]
  - HOMICIDAL IDEATION [None]
  - HYPERHIDROSIS [None]
  - INSOMNIA [None]
  - INTENTIONAL DRUG MISUSE [None]
  - JOINT INJURY [None]
  - NAUSEA [None]
  - VOMITING [None]
